FAERS Safety Report 7050495-2 (Version None)
Quarter: 2010Q4

REPORT INFORMATION
  Report Type: 
  Country: None (occurrence: None)
  Receive Date: 20101018
  Receipt Date: 20101005
  Transmission Date: 20110411
  Serious: Yes (Other)
  Sender: FDA-Public Use
  Company Number: BR-ELI_LILLY_AND_COMPANY-BR201010001285

PATIENT
  Sex: Female

DRUGS (1)
  1. OLANZAPINE [Suspect]
     Dosage: UNK, UNKNOWN
     Route: 065

REACTIONS (2)
  - APPENDICITIS [None]
  - DRUG ABUSE [None]
